FAERS Safety Report 7321405 (Version 2)
Quarter: 2014Q2

REPORT INFORMATION
  Report Type: Spontaneous
  Country: None (occurrence: None)
  Receive Date: 20100223
  Receipt Date: 20140416
  Transmission Date: 20141212
  Serious: Yes (Life-Threatening, Hospitalization, Other)
  Sender: FDA-Public Use
  Company Number: AUR-APL-2010-00436

PATIENT
  Age: 78 Year
  Sex: Male
  Weight: 90 kg

DRUGS (4)
  1. TAMSULOSINE [Suspect]
     Indication: BENIGN PROSTATIC HYPERPLASIA
     Dosage: 0.4MG, ORAL
     Route: 048
     Dates: end: 20090415
  2. FALITHROM [Suspect]
     Indication: CARDIAC FIBRILLATION
     Dosage: 3-9MG-DAILY-ORAL
     Route: 048
     Dates: start: 20090415, end: 20090415
  3. HYDROCHLOROTHIAZIDE\VALSARTAN [Suspect]
     Indication: HYPERTENSION
     Dosage: 1DF-DAILY-ORAL
     Route: 048
     Dates: start: 20090415, end: 20090415
  4. TORSEMIDE [Suspect]
     Indication: HYPERTENSION
     Dosage: ORAL
     Route: 048
     Dates: end: 20090415

REACTIONS (6)
  - Oedematous pancreatitis [None]
  - Gallbladder non-functioning [None]
  - Hyperhidrosis [None]
  - Liver disorder [None]
  - Blood pressure decreased [None]
  - Pancreatitis acute [None]
